FAERS Safety Report 18394065 (Version 1)
Quarter: 2020Q4

REPORT INFORMATION
  Report Type: Spontaneous
  Country: US (occurrence: US)
  Receive Date: 20201016
  Receipt Date: 20201016
  Transmission Date: 20210114
  Serious: Yes (Other)
  Sender: FDA-Public Use
  Company Number: US-3M-2020-US-017243

PATIENT
  Age: 61 Year
  Sex: Female
  Weight: 68.04 kg

DRUGS (3)
  1. TOPROL XL [Concomitant]
     Active Substance: METOPROLOL SUCCINATE
     Dosage: 50 MG DAILY
  2. PERIDEX [Suspect]
     Active Substance: CHLORHEXIDINE GLUCONATE
     Indication: ANTIBIOTIC PROPHYLAXIS
     Dosage: TWICE DAILY FOR 7 DAYS
     Route: 048
     Dates: start: 20200807, end: 20200814
  3. MULTIVITAMIN [Concomitant]
     Active Substance: VITAMINS
     Dosage: DAILY

REACTIONS (15)
  - Paraesthesia oral [Not Recovered/Not Resolved]
  - Glossodynia [Recovered/Resolved]
  - Dysgeusia [Not Recovered/Not Resolved]
  - Tongue discomfort [Not Recovered/Not Resolved]
  - Glossitis [Not Recovered/Not Resolved]
  - Cyanosis [Not Recovered/Not Resolved]
  - Pain [Not Recovered/Not Resolved]
  - Stomatitis [Not Recovered/Not Resolved]
  - Tooth deposit [Not Recovered/Not Resolved]
  - Quality of life decreased [Unknown]
  - Oral mucosal erythema [Not Recovered/Not Resolved]
  - Gingival discomfort [Not Recovered/Not Resolved]
  - Small fibre neuropathy [Unknown]
  - Ageusia [Recovered/Resolved]
  - Burning mouth syndrome [Not Recovered/Not Resolved]

NARRATIVE: CASE EVENT DATE: 20200807
